FAERS Safety Report 7096933-0 (Version None)
Quarter: 2010Q4

REPORT INFORMATION
  Report Type: 
  Country: None (occurrence: None)
  Receive Date: 20101111
  Receipt Date: 20101101
  Transmission Date: 20110411
  Serious: Yes (Hospitalization, Other)
  Sender: FDA-Public Use
  Company Number: US-JNJFOC-20101004682

PATIENT
  Sex: Female
  Weight: 79.38 kg

DRUGS (8)
  1. FENTANYL-100 [Suspect]
     Indication: BACK PAIN
     Dosage: NDC# 0781-7244-55
     Route: 062
  2. FENTANYL-100 [Suspect]
     Route: 062
  3. FENTANYL-100 [Suspect]
     Route: 062
  4. FENTANYL-100 [Suspect]
     Dosage: NDC#0781-7114-55
     Route: 062
  5. DURAGESIC-100 [Suspect]
     Indication: ILL-DEFINED DISORDER
     Route: 062
  6. DURAGESIC-100 [Suspect]
     Dosage: 2 PATCHES EVERY 72 HOURS
     Route: 062
  7. WELLBUTRIN [Concomitant]
     Indication: DEPRESSION
     Route: 048
  8. OXYCONTIN [Concomitant]
     Indication: BREAKTHROUGH PAIN
     Dosage: 5 MG AS NEEDED EVERY 4 HOURS
     Route: 048

REACTIONS (16)
  - ANKLE FRACTURE [None]
  - APPLICATION SITE PRURITUS [None]
  - BLOOD CHOLESTEROL INCREASED [None]
  - DEPENDENCE [None]
  - DRUG ADMINISTERED AT INAPPROPRIATE SITE [None]
  - FALL [None]
  - GALLBLADDER DISORDER [None]
  - HYPERHIDROSIS [None]
  - HYPERTENSION [None]
  - INCORRECT DOSE ADMINISTERED [None]
  - INCORRECT DRUG ADMINISTRATION DURATION [None]
  - PERICARDIAL EFFUSION [None]
  - PLEURAL EFFUSION [None]
  - POSTOPERATIVE WOUND INFECTION [None]
  - PRODUCT ADHESION ISSUE [None]
  - WITHDRAWAL SYNDROME [None]
